FAERS Safety Report 7235458-6 (Version None)
Quarter: 2011Q1

REPORT INFORMATION
  Report Type: 
  Country: None (occurrence: None)
  Receive Date: 20110120
  Receipt Date: 20110112
  Transmission Date: 20110831
  Serious: Yes (Hospitalization, Other)
  Sender: FDA-Public Use
  Company Number: US-GILEAD-2010-0033908

PATIENT
  Sex: Female
  Weight: 67.1 kg

DRUGS (14)
  1. AMBIEN [Concomitant]
     Indication: INSOMNIA
     Dates: start: 20090921
  2. ALPRAZOLAM [Concomitant]
     Indication: ANXIETY
     Dates: start: 20090921
  3. LOPRESSOR [Concomitant]
     Indication: HYPERTENSION
     Dates: start: 20090326
  4. ASA [Concomitant]
     Indication: CEREBROVASCULAR ACCIDENT
     Dates: start: 20090326
  5. DARUNAVIR [Concomitant]
     Indication: HIV INFECTION
     Route: 048
     Dates: start: 20091203, end: 20101116
  6. DILANTIN [Concomitant]
     Indication: CEREBROVASCULAR ACCIDENT
     Dates: start: 20090326
  7. SEROQUEL [Concomitant]
     Indication: DEPRESSION
     Dates: start: 20090326
  8. TRUVADA [Suspect]
     Indication: HIV INFECTION
     Route: 048
     Dates: start: 20091203, end: 20101116
  9. RITONAVIR [Concomitant]
     Indication: HIV INFECTION
     Route: 048
     Dates: start: 20091203, end: 20101116
  10. CRESTOR [Concomitant]
     Indication: BLOOD CHOLESTEROL INCREASED
     Dates: start: 20090203
  11. FLEXERIL [Concomitant]
     Indication: BACK PAIN
     Dates: start: 20090921
  12. PERCOCET [Concomitant]
     Indication: HEADACHE
     Route: 048
     Dates: start: 20100830
  13. PROZAC [Concomitant]
     Indication: DEPRESSION
     Dates: start: 20090728
  14. CARVEDILOL [Concomitant]
     Indication: HYPERTENSION

REACTIONS (1)
  - LABORATORY TEST ABNORMAL [None]
